FAERS Safety Report 19938856 (Version 2)
Quarter: 2021Q4

REPORT INFORMATION
  Report Type: Spontaneous
  Country: TW (occurrence: TW)
  Receive Date: 20211011
  Receipt Date: 20211013
  Transmission Date: 20220303
  Serious: Yes (Death, Other)
  Sender: FDA-Public Use
  Company Number: TW-TAKEDA-2021TJP100376

PATIENT
  Sex: Female
  Weight: 48.5 kg

DRUGS (1)
  1. ZEJULA [Suspect]
     Active Substance: NIRAPARIB
     Indication: Product used for unknown indication
     Dosage: 2 CAPSULES, QD
     Route: 048
     Dates: start: 20210130, end: 20210414

REACTIONS (3)
  - Death [Fatal]
  - Off label use [Unknown]
  - Platelet count decreased [Unknown]
